FAERS Safety Report 21654863 (Version 1)
Quarter: 2022Q4

REPORT INFORMATION
  Report Type: Spontaneous
  Country: US (occurrence: US)
  Receive Date: 20221129
  Receipt Date: 20221129
  Transmission Date: 20230113
  Serious: No
  Sender: FDA-Public Use
  Company Number: US-SECURA BIO, INC.-2022-SECUR-US000027

PATIENT

DRUGS (2)
  1. COPIKTRA [Suspect]
     Active Substance: DUVELISIB
     Indication: Peripheral T-cell lymphoma unspecified refractory
     Dosage: 75 MG, BID
     Route: 065
  2. COPIKTRA [Suspect]
     Active Substance: DUVELISIB
     Dosage: 25 MG, BID
     Route: 065

REACTIONS (2)
  - Rash [Unknown]
  - Product use in unapproved indication [Unknown]
